FAERS Safety Report 16842584 (Version 4)
Quarter: 2019Q4

REPORT INFORMATION
  Report Type: Spontaneous
  Country: US (occurrence: US)
  Receive Date: 20190924
  Receipt Date: 20191213
  Transmission Date: 20200122
  Serious: Yes (Other)
  Sender: FDA-Public Use
  Company Number: US-AEGERION PHARMACEUTICAL, INC-AEGR004361

PATIENT
  Sex: Female
  Weight: 48.17 kg

DRUGS (17)
  1. MYALEPT [Suspect]
     Active Substance: METRELEPTIN
     Dosage: 5 MG, QD
     Route: 058
     Dates: start: 20190614
  2. B COMPLEX                          /00322001/ [Concomitant]
     Active Substance: CALCIUM PANTOTHENATE\CYANOCOBALAMIN\NIACINAMIDE\PYRIDOXINE HYDROCHLORIDE\RIBOFLAVIN\THIAMINE HYDROCHLORIDE
     Indication: PRODUCT USED FOR UNKNOWN INDICATION
  3. MYALEPT [Suspect]
     Active Substance: METRELEPTIN
     Dosage: 2.5 MG, QD
     Route: 058
     Dates: start: 201808
  4. LOPID [Concomitant]
     Active Substance: GEMFIBROZIL
     Indication: PRODUCT USED FOR UNKNOWN INDICATION
     Dosage: 600 MG, BID (30 MINUTES BEFORE MORNING AND EVENING  MEAL)
     Route: 048
  5. VITAMIN D3 [Concomitant]
     Active Substance: CHOLECALCIFEROL
     Indication: VITAMIN D DEFICIENCY
     Dosage: 1000 UNITS, QD
     Dates: start: 2012
  6. VIVELLE-DOT [Concomitant]
     Active Substance: ESTRADIOL
     Indication: POLYCYSTIC OVARIES
     Dosage: 0.075 MG, QD
     Route: 061
  7. PROGESTERONE. [Concomitant]
     Active Substance: PROGESTERONE
     Indication: POLYCYSTIC OVARIES
     Dosage: 200 MG, EVERY DAY X 12 DAYS IN THE EVENING SEQUENTIALLY PER 28 DAY CYCLE
     Route: 048
  8. GLIPIZIDE. [Concomitant]
     Active Substance: GLIPIZIDE
     Dosage: 10 MG, PRE-SUPPER
     Route: 048
     Dates: start: 2012
  9. BACTERIOSTATIC WATER [Concomitant]
     Active Substance: WATER
     Indication: PRODUCT USED FOR UNKNOWN INDICATION
  10. OMEGA 3 DHA/EPA/FISH OIL                        /08184401/ [Concomitant]
     Indication: HYPERLIPIDAEMIA
     Dosage: 1.8 G, BID
     Route: 048
     Dates: start: 2012
  11. PIOGLITAZONE. [Concomitant]
     Active Substance: PIOGLITAZONE
     Indication: TYPE 2 DIABETES MELLITUS
     Dosage: 45 MG, QD
     Route: 048
     Dates: start: 2012
  12. METFORMIN [Concomitant]
     Active Substance: METFORMIN HYDROCHLORIDE
     Indication: PRODUCT USED FOR UNKNOWN INDICATION
     Dosage: 1 DF, BID
     Route: 048
  13. MYALEPT [Suspect]
     Active Substance: METRELEPTIN
     Indication: CONGENITAL GENERALISED LIPODYSTROPHY
     Dosage: 2.5 MG, QD
     Route: 058
     Dates: start: 20140123, end: 2015
  14. MELATONIN [Concomitant]
     Active Substance: MELATONIN
     Indication: PRODUCT USED FOR UNKNOWN INDICATION
     Dosage: 5 MG, UNK
     Route: 048
  15. GLIPIZIDE. [Concomitant]
     Active Substance: GLIPIZIDE
     Indication: TYPE 2 DIABETES MELLITUS
     Dosage: 5 MG WITH BREAKFAST
     Route: 048
  16. GEMFIBROZIL. [Concomitant]
     Active Substance: GEMFIBROZIL
     Indication: HYPERLIPIDAEMIA
     Dosage: 600 MG, BID
     Route: 048
     Dates: start: 2012
  17. MULTIVITAMIN                       /07504101/ [Concomitant]
     Active Substance: VITAMINS
     Indication: PRODUCT USED FOR UNKNOWN INDICATION
     Dosage: 1 DF, QD

REACTIONS (10)
  - Hormone level abnormal [Recovering/Resolving]
  - Condition aggravated [Recovering/Resolving]
  - Insulin resistance [Recovering/Resolving]
  - Therapy cessation [Recovered/Resolved]
  - Drug ineffective [Recovering/Resolving]
  - Weight decreased [Recovering/Resolving]
  - Blood glucose increased [Recovering/Resolving]
  - Decreased appetite [Recovering/Resolving]
  - Diabetes mellitus [Recovering/Resolving]
  - Diabetes mellitus inadequate control [Recovering/Resolving]

NARRATIVE: CASE EVENT DATE: 2015
